FAERS Safety Report 17244561 (Version 1)
Quarter: 2020Q1

REPORT INFORMATION
  Report Type: Spontaneous
  Country: US (occurrence: US)
  Receive Date: 20200107
  Receipt Date: 20200107
  Transmission Date: 20200409
  Serious: Yes (Other)
  Sender: FDA-Public Use
  Company Number: US-NOVOPROD-705320

PATIENT
  Age: 76 Year
  Sex: Female

DRUGS (2)
  1. FIASP 3ML PDS290 [Suspect]
     Active Substance: INSULIN ASPART
     Indication: PRODUCT USED FOR UNKNOWN INDICATION
     Dosage: UNK
     Route: 058
  2. TRESIBA [Concomitant]
     Active Substance: INSULIN DEGLUDEC
     Indication: PRODUCT USED FOR UNKNOWN INDICATION
     Dosage: UNK
     Route: 058

REACTIONS (6)
  - Fall [Unknown]
  - Memory impairment [Unknown]
  - Upper limb fracture [Unknown]
  - Forearm fracture [Unknown]
  - Balance disorder [Unknown]
  - Condition aggravated [Unknown]
